FAERS Safety Report 8810066 (Version 2)
Quarter: 2012Q4

REPORT INFORMATION
  Report Type: 
  Country: IT (occurrence: IT)
  Receive Date: 20120926
  Receipt Date: 20121219
  Transmission Date: 20130627
  Serious: Yes (Death, Hospitalization)
  Sender: FDA-Public Use
  Company Number: IT-GLAXOSMITHKLINE-B0832892A

PATIENT
  Age: 43 Year
  Sex: Female
  Weight: 114 kg

DRUGS (2)
  1. REVOLADE [Suspect]
     Indication: IDIOPATHIC THROMBOCYTOPENIC PURPURA
     Dosage: 50MG per day
     Route: 065
  2. ORAL CONTRACEPTIVE [Concomitant]

REACTIONS (5)
  - Angiopathy [Fatal]
  - Myocardial infarction [Unknown]
  - Platelet count increased [Unknown]
  - Platelet count decreased [Unknown]
  - Petechiae [Unknown]
